FAERS Safety Report 21831302 (Version 2)
Quarter: 2023Q1

REPORT INFORMATION
  Report Type: Spontaneous
  Country: GR (occurrence: GR)
  Receive Date: 20230106
  Receipt Date: 20230126
  Transmission Date: 20230417
  Serious: Yes (Other)
  Sender: FDA-Public Use
  Company Number: GR-009507513-2301GRC001080

PATIENT
  Age: 70 Year
  Sex: Female

DRUGS (1)
  1. PEMBROLIZUMAB [Suspect]
     Active Substance: PEMBROLIZUMAB
     Indication: Lung neoplasm malignant
     Dosage: UNK

REACTIONS (6)
  - Rheumatoid arthritis [Unknown]
  - Secondary amyloidosis [Unknown]
  - Immune-mediated thyroiditis [Unknown]
  - Immune-mediated pancreatitis [Unknown]
  - Nephrotic syndrome [Recovering/Resolving]
  - Tubulointerstitial nephritis [Recovering/Resolving]
